FAERS Safety Report 10171578 (Version 1)
Quarter: 2014Q2

REPORT INFORMATION
  Report Type: Spontaneous
  Country: US (occurrence: None)
  Receive Date: 20140513
  Receipt Date: 20140513
  Transmission Date: 20141212
  Serious: No
  Sender: FDA-Public Use
  Company Number: None

PATIENT
  Age: 65 Year
  Sex: Female

DRUGS (13)
  1. FORTEO [Suspect]
     Dosage: 20 MCG, DAILY, SUB J
     Dates: start: 20130710
  2. ZOCOR [Concomitant]
  3. OMEPRAZOLE [Concomitant]
  4. VICODIN HP [Concomitant]
  5. IMMETRIX [Concomitant]
  6. VALTREX [Concomitant]
  7. ZYRTEC D [Concomitant]
  8. MULTIVITAMIN [Concomitant]
  9. VITAMIN D [Concomitant]
  10. VITAMIN C [Concomitant]
  11. XANAX [Concomitant]
  12. BACLOFEN [Concomitant]
  13. FLUTICASONE PROPIONATE [Concomitant]

REACTIONS (1)
  - Fatigue [None]
